FAERS Safety Report 5805988-X (Version None)
Quarter: 2008Q3

REPORT INFORMATION
  Report Type: 
  Country: None (occurrence: None)
  Receive Date: 20080710
  Receipt Date: 20080707
  Transmission Date: 20090109
  Serious: Yes (Hospitalization)
  Sender: FDA-Public Use
  Company Number: B0511786A

PATIENT
  Age: 76 Year
  Sex: Female

DRUGS (1)
  1. SERETIDE [Suspect]
     Indication: PROPHYLAXIS
     Dosage: 250MCG TWICE PER DAY
     Route: 055
     Dates: start: 20080121, end: 20080201

REACTIONS (14)
  - AFFECT LABILITY [None]
  - AGITATION [None]
  - ANXIETY [None]
  - DEPRESSION [None]
  - DYSPNOEA [None]
  - HALLUCINATION, VISUAL [None]
  - HYPOAESTHESIA [None]
  - INSOMNIA [None]
  - MANIA [None]
  - MENTAL DISORDER [None]
  - MOOD ALTERED [None]
  - OVERDOSE [None]
  - SPEECH DISORDER [None]
  - TREATMENT NONCOMPLIANCE [None]
